FAERS Safety Report 15379050 (Version 1)
Quarter: 2018Q3

REPORT INFORMATION
  Report Type: Spontaneous
  Country: US (occurrence: US)
  Receive Date: 20180906
  Receipt Date: 20180906
  Transmission Date: 20181010
  Serious: Yes (Other)
  Sender: FDA-Public Use
  Company Number: None

PATIENT
  Age: 82 Year
  Sex: Female

DRUGS (1)
  1. REGORAFENIB. [Suspect]
     Active Substance: REGORAFENIB
     Indication: COLORECTAL CANCER
     Dosage: ?          OTHER FREQUENCY:3 WKS ON, 1 WK OFF;?
     Route: 048

REACTIONS (2)
  - Product packaging quantity issue [None]
  - Drug dispensing error [None]

NARRATIVE: CASE EVENT DATE: 20180906
